FAERS Safety Report 16996344 (Version 1)
Quarter: 2019Q4

REPORT INFORMATION
  Report Type: Spontaneous
  Country: CA (occurrence: CA)
  Receive Date: 20191105
  Receipt Date: 20191105
  Transmission Date: 20200122
  Serious: Yes (Hospitalization)
  Sender: FDA-Public Use
  Company Number: CA-PFIZER INC-2019471222

PATIENT
  Age: 58 Year
  Sex: Male
  Weight: 61 kg

DRUGS (1)
  1. GABAPENTIN. [Suspect]
     Active Substance: GABAPENTIN
     Indication: INTERVERTEBRAL DISC DEGENERATION
     Dosage: 1500 MG, 3X/DAY
     Route: 048

REACTIONS (6)
  - Pain [Recovered/Resolved]
  - Prescribed overdose [Unknown]
  - Abdominal discomfort [Recovered/Resolved]
  - Infection [Recovered/Resolved]
  - Off label use [Unknown]
  - Product use in unapproved indication [Unknown]
